FAERS Safety Report 17400865 (Version 1)
Quarter: 2020Q1

REPORT INFORMATION
  Report Type: Spontaneous
  Country: US (occurrence: US)
  Receive Date: 20200211
  Receipt Date: 20200211
  Transmission Date: 20200409
  Serious: Yes (Other)
  Sender: FDA-Public Use
  Company Number: US-ELI_LILLY_AND_COMPANY-US202002000133

PATIENT
  Age: 74 Year
  Sex: Female

DRUGS (1)
  1. FORTEO [Suspect]
     Active Substance: TERIPARATIDE
     Indication: OSTEOPOROSIS POSTMENOPAUSAL
     Dosage: UNK, UNKNOWN
     Route: 065
     Dates: start: 20190828

REACTIONS (10)
  - Fall [Unknown]
  - Fall [Unknown]
  - Dizziness [Recovering/Resolving]
  - Blood pressure decreased [Unknown]
  - Syncope [Unknown]
  - Syncope [Unknown]
  - Fall [Unknown]
  - Hyponatraemia [Unknown]
  - Hyperhidrosis [Unknown]
  - Syncope [Unknown]

NARRATIVE: CASE EVENT DATE: 20190828
